FAERS Safety Report 4647979-0 (Version None)
Quarter: 2005Q2

REPORT INFORMATION
  Report Type: 
  Country: None (occurrence: None)
  Receive Date: 20050331
  Receipt Date: 20050208
  Transmission Date: 20051028
  Serious: No
  Sender: FDA-Public Use
  Company Number: 05P-163-0289998-00

PATIENT
  Age: 79 Year
  Sex: Female
  Weight: 53.978 kg

DRUGS (5)
  1. HUMIRA [Suspect]
     Indication: RHEUMATOID ARTHRITIS
     Dosage: 40 MG, 1 IN 1 WK, SUBCUTANEOUS
     Route: 058
     Dates: start: 20040101
  2. CORTISONE [Concomitant]
  3. METHOTREXATE SODIUM [Concomitant]
  4. ALENDRONATE SODIUM [Concomitant]
  5. ETANERCEPT [Concomitant]

REACTIONS (2)
  - ARTHRALGIA [None]
  - CONDITION AGGRAVATED [None]
